FAERS Safety Report 10277245 (Version 3)
Quarter: 2015Q1

REPORT INFORMATION
  Report Type: Spontaneous
  Country: US (occurrence: US)
  Receive Date: 20140703
  Receipt Date: 20150203
  Transmission Date: 20150720
  Serious: Yes (Other)
  Sender: FDA-Public Use
  Company Number: US-PFIZER INC-2014179451

PATIENT
  Sex: Female

DRUGS (4)
  1. RELPAX [Suspect]
     Active Substance: ELETRIPTAN HYDROBROMIDE
     Indication: MIGRAINE
     Dosage: UNK
  2. RELPAX [Interacting]
     Active Substance: ELETRIPTAN HYDROBROMIDE
     Dosage: 2 DF, UNK
  3. XANAX [Concomitant]
     Active Substance: ALPRAZOLAM
     Dosage: UNK
  4. ERYTHROMYCIN. [Interacting]
     Active Substance: ERYTHROMYCIN
     Dosage: UNK

REACTIONS (5)
  - Somnolence [Unknown]
  - Tooth abscess [Unknown]
  - Influenza [Unknown]
  - Drug ineffective [Unknown]
  - Drug interaction [Unknown]

NARRATIVE: CASE EVENT DATE: 2014
